FAERS Safety Report 21734659 (Version 1)
Quarter: 2022Q4

REPORT INFORMATION
  Report Type: Spontaneous
  Country: US (occurrence: US)
  Receive Date: 20221215
  Receipt Date: 20221215
  Transmission Date: 20230113
  Serious: No
  Sender: FDA-Public Use
  Company Number: US-PFIZER INC-PV202200124174

PATIENT
  Sex: Male

DRUGS (2)
  1. PROTONIX [Interacting]
     Active Substance: PANTOPRAZOLE SODIUM
     Dosage: UNK
  2. ORGOVYX [Interacting]
     Active Substance: RELUGOLIX
     Dosage: UNK

REACTIONS (3)
  - Pain [Unknown]
  - Fatigue [Unknown]
  - Inhibitory drug interaction [Unknown]
